FAERS Safety Report 23188023 (Version 1)
Quarter: 2023Q4

REPORT INFORMATION
  Report Type: Spontaneous
  Country: US (occurrence: US)
  Receive Date: 20231115
  Receipt Date: 20231115
  Transmission Date: 20240109
  Serious: No
  Sender: FDA-Public Use
  Company Number: US-PFIZER INC-202300356622

PATIENT

DRUGS (1)
  1. MINIPRESS [Suspect]
     Active Substance: PRAZOSIN HYDROCHLORIDE
     Dosage: 1 MG, DAILY

REACTIONS (1)
  - Dizziness postural [Unknown]
